FAERS Safety Report 13977118 (Version 1)
Quarter: 2017Q3

REPORT INFORMATION
  Report Type: Spontaneous
  Country: US (occurrence: US)
  Receive Date: 20170915
  Receipt Date: 20170915
  Transmission Date: 20171128
  Serious: No
  Sender: FDA-Public Use
  Company Number: US-BEH-2017083626

PATIENT
  Sex: Female
  Weight: 28.12 kg

DRUGS (2)
  1. HIZENTRA [Suspect]
     Active Substance: HUMAN IMMUNOGLOBULIN G
     Indication: IMMUNODEFICIENCY COMMON VARIABLE
     Dosage: 4 G, QW
     Route: 058
     Dates: start: 20130107
  2. CEFDINIR. [Concomitant]
     Active Substance: CEFDINIR
     Route: 065

REACTIONS (1)
  - Skin texture abnormal [Unknown]
